APPROVED DRUG PRODUCT: RANITIDINE HYDROCHLORIDE
Active Ingredient: RANITIDINE HYDROCHLORIDE
Strength: EQ 300MG BASE
Dosage Form/Route: CAPSULE;ORAL
Application: A211058 | Product #002
Applicant: AUROBINDO PHARMA LTD
Approved: Jul 16, 2018 | RLD: No | RS: No | Type: DISCN